FAERS Safety Report 6107429-4 (Version None)
Quarter: 2009Q1

REPORT INFORMATION
  Report Type: 
  Country: None (occurrence: None)
  Receive Date: 20090309
  Receipt Date: 20090305
  Transmission Date: 20090719
  Serious: Yes (Hospitalization)
  Sender: FDA-Public Use
  Company Number: DE-PFIZER INC-2009171607

PATIENT

DRUGS (11)
  1. MARAVIROC [Suspect]
     Indication: HIV INFECTION
     Dosage: 150 MG, 2X/DAY
     Route: 048
     Dates: start: 20050712
  2. REYATAZ [Concomitant]
     Dosage: 300 MG, UNK
     Route: 048
     Dates: start: 20050829
  3. NORVIR [Concomitant]
     Dosage: 100 MG, UNK
     Route: 048
     Dates: start: 20050712
  4. TRUVADA [Concomitant]
     Dosage: UNK
     Route: 048
     Dates: start: 20050712
  5. SYMBICORT [Concomitant]
     Dosage: UNK
     Route: 055
     Dates: start: 20060614
  6. SPIRIVA [Concomitant]
     Dosage: UNK
     Route: 055
     Dates: start: 20060614
  7. BERODUAL [Concomitant]
     Dosage: UNK
     Route: 055
     Dates: start: 20070101
  8. MUCOSOLVAN [Concomitant]
     Dosage: UNK
     Route: 048
     Dates: start: 20081029
  9. DOXEPIN [Concomitant]
     Dosage: UNK
     Route: 048
     Dates: start: 20081029
  10. NEXIUM [Concomitant]
     Dosage: UNK
     Route: 048
     Dates: start: 20081029
  11. METOCLOPRAMIDE HYDROCHLORIDE [Concomitant]
     Dosage: UNK
     Route: 048
     Dates: start: 20081029

REACTIONS (1)
  - LUNG DISORDER [None]
